FAERS Safety Report 4642992-1 (Version None)
Quarter: 2005Q2

REPORT INFORMATION
  Report Type: 
  Country: None (occurrence: None)
  Receive Date: 20050421
  Receipt Date: 20050405
  Transmission Date: 20051028
  Serious: Yes (Life-Threatening, Hospitalization)
  Sender: FDA-Public Use
  Company Number: 2005-0008212

PATIENT
  Age: 28 Year
  Sex: Male
  Weight: 64 kg

DRUGS (2)
  1. ADEFOVIR DIPIVOXIL (ADEFOVIR DIPIVOXIL) [Suspect]
     Indication: CHRONIC HEPATITIS
     Dosage: 10 MG, 1 IN 1 D, ORAL
     Route: 048
     Dates: start: 20040713, end: 20041215
  2. PEGINTERFERON ALFA-2A (PEGINTERFERON ALFA-2A) [Suspect]
     Indication: CHRONIC HEPATITIS
     Dosage: 180 MCG, 1 IN 1 WK, SUBCUTANEOUS
     Route: 058
     Dates: start: 20040713, end: 20041201

REACTIONS (11)
  - ASCITES [None]
  - COUGH [None]
  - DISEASE RECURRENCE [None]
  - DYSPNOEA [None]
  - GENERAL PHYSICAL CONDITION ABNORMAL [None]
  - LIVER DISORDER [None]
  - LYMPHADENOPATHY [None]
  - PLEURAL EFFUSION [None]
  - PYREXIA [None]
  - TUBERCULOSIS [None]
  - WEIGHT DECREASED [None]
